FAERS Safety Report 8387877-2 (Version None)
Quarter: 2012Q2

REPORT INFORMATION
  Report Type: 
  Country: None (occurrence: None)
  Receive Date: 20120525
  Receipt Date: 20120518
  Transmission Date: 20120825
  Serious: Yes (Hospitalization)
  Sender: FDA-Public Use
  Company Number: IT-ABBOTT-12P-083-0936754-01

PATIENT
  Sex: Male

DRUGS (8)
  1. HUMIRA [Suspect]
     Indication: CROHN'S DISEASE
     Dosage: 160 MG (BASELINE)/ 80 MG (WEEK 2)
     Route: 058
     Dates: start: 20090119, end: 20090805
  2. INFLIXIMAB [Concomitant]
     Indication: CROHN'S DISEASE
     Dosage: 300 MG WEEK 0; 300 MG WEEK 2
     Dates: start: 20091123
  3. INFLIXIMAB [Concomitant]
     Indication: DRUG INEFFECTIVE
  4. PREDNISONE TAB [Concomitant]
     Indication: ABDOMINAL PAIN
  5. PREDNISONE TAB [Concomitant]
     Indication: DIARRHOEA
  6. PREDNISONE TAB [Concomitant]
     Indication: PYREXIA
     Dates: start: 20090601, end: 20090618
  7. CIPROFLOXACIN [Concomitant]
     Indication: PYREXIA
     Dates: start: 20090722
  8. PREDNISONE TAB [Concomitant]
     Indication: CROHN'S DISEASE

REACTIONS (1)
  - CROHN'S DISEASE [None]
